FAERS Safety Report 9399285 (Version 1)
Quarter: 2013Q3

REPORT INFORMATION
  Report Type: Spontaneous
  Country: US (occurrence: US)
  Receive Date: 20130715
  Receipt Date: 20130715
  Transmission Date: 20140515
  Serious: No
  Sender: FDA-Public Use
  Company Number: US-PFIZER INC-2013202695

PATIENT
  Sex: Female

DRUGS (2)
  1. PROCARDIA XL [Suspect]
     Dosage: 30 MG, UNK
  2. PROCARDIA XL [Suspect]
     Dosage: 80 MG, UNK

REACTIONS (1)
  - Blood pressure inadequately controlled [Unknown]
